FAERS Safety Report 9180648 (Version 6)
Quarter: 2013Q2

REPORT INFORMATION
  Report Type: Spontaneous
  Country: JP (occurrence: JP)
  Receive Date: 20130322
  Receipt Date: 20130522
  Transmission Date: 20140414
  Serious: Yes (Life-Threatening)
  Sender: FDA-Public Use
  Company Number: JP-ELI_LILLY_AND_COMPANY-JP201303004101

PATIENT
  Age: 76 Year
  Sex: Female
  Weight: 40.6 kg

DRUGS (20)
  1. FORTEO [Suspect]
     Indication: OSTEOPOROSIS
     Dosage: UNK
     Route: 058
     Dates: start: 20130307, end: 20130308
  2. FORTEO [Suspect]
     Dosage: UNK
     Route: 058
     Dates: start: 20130314
  3. HUMALOG LISPRO [Suspect]
     Indication: TYPE 1 DIABETES MELLITUS
     Dosage: 10 IU, QD
     Route: 058
     Dates: start: 20120927, end: 20121022
  4. HUMALOG LISPRO [Suspect]
     Dosage: 12 IU, QD
     Route: 058
     Dates: start: 20121023, end: 20130305
  5. HUMALOG LISPRO [Suspect]
     Dosage: 15 IU, QD
     Route: 058
     Dates: start: 20130306, end: 20130311
  6. HUMALOG LISPRO [Suspect]
     Dosage: 14 IU, QD
     Route: 058
     Dates: start: 20130312
  7. NOVOLIN R [Concomitant]
     Indication: TYPE 1 DIABETES MELLITUS
     Dosage: 15 IU, QD
     Route: 058
     Dates: start: 20120905, end: 20130305
  8. NOVOLIN R [Concomitant]
     Dosage: 18 IU, QD
     Route: 058
     Dates: start: 20130306, end: 20130311
  9. NOVOLIN R [Concomitant]
     Dosage: 17 IU, QD
     Route: 058
     Dates: start: 20130312
  10. LANTUS [Concomitant]
     Indication: TYPE 1 DIABETES MELLITUS
     Dosage: 3 IU, QD
     Route: 058
     Dates: start: 20120927, end: 20121022
  11. LANTUS [Concomitant]
     Dosage: 4 IU, QD
     Route: 058
     Dates: start: 20121023, end: 20130311
  12. LANTUS [Concomitant]
     Dosage: 6 IU, QD
     Route: 058
     Dates: start: 20130312
  13. LYRICA [Concomitant]
     Dosage: 25 MG, BID
     Route: 048
     Dates: start: 20130307, end: 20130308
  14. METHYCOBAL [Concomitant]
     Dosage: 1 DF, TID
     Route: 048
  15. MOHRUS L [Concomitant]
     Dosage: 1 DF, QD
     Route: 062
  16. IRBETAN [Concomitant]
     Dosage: 1 DF, QD
     Route: 048
  17. PROCYLIN [Concomitant]
     Route: 048
  18. KINEDAK [Concomitant]
     Route: 048
  19. TAKEPRON [Concomitant]
     Route: 048
  20. MAGMITT [Concomitant]
     Route: 048

REACTIONS (3)
  - Hypoglycaemia [Recovered/Resolved]
  - Blood alkaline phosphatase increased [Unknown]
  - Liver function test abnormal [Unknown]
